FAERS Safety Report 24290867 (Version 1)
Quarter: 2024Q3

REPORT INFORMATION
  Report Type: Spontaneous
  Country: CN (occurrence: CN)
  Receive Date: 20240906
  Receipt Date: 20240906
  Transmission Date: 20241016
  Serious: Yes (Other)
  Sender: PFIZER
  Company Number: CN-PFIZER INC-PV202400116137

PATIENT
  Age: 31 Year
  Sex: Female
  Weight: 55 kg

DRUGS (1)
  1. HEMABATE [Suspect]
     Active Substance: CARBOPROST TROMETHAMINE
     Indication: Uterine hypotonus
     Dosage: 250 MG, 1X/DAY
     Route: 030
     Dates: start: 20240802, end: 20240802

REACTIONS (8)
  - Drug hypersensitivity [Recovering/Resolving]
  - Nausea [Recovering/Resolving]
  - Vomiting [Recovering/Resolving]
  - Listless [Recovering/Resolving]
  - Feeling abnormal [Recovering/Resolving]
  - Vertigo [Recovering/Resolving]
  - Decreased appetite [Recovering/Resolving]
  - Yellow skin [Recovering/Resolving]

NARRATIVE: CASE EVENT DATE: 20240801
